FAERS Safety Report 24194764 (Version 1)
Quarter: 2024Q3

REPORT INFORMATION
  Report Type: Spontaneous
  Country: BG (occurrence: BG)
  Receive Date: 20240809
  Receipt Date: 20240809
  Transmission Date: 20241016
  Serious: Yes (Other)
  Sender: PFIZER
  Company Number: BG-002147023-NVSC2024BG100096

PATIENT
  Age: 58 Year
  Sex: Male

DRUGS (6)
  1. ENCORAFENIB [Suspect]
     Active Substance: ENCORAFENIB
     Indication: Malignant melanoma
     Dosage: 450 MG, QD
     Route: 065
     Dates: start: 202401, end: 20240130
  2. BINIMETINIB [Suspect]
     Active Substance: BINIMETINIB
     Indication: Malignant melanoma
     Dosage: 45 MG, BID
     Route: 065
     Dates: start: 202401, end: 20240130
  3. DABRAFENIB [Suspect]
     Active Substance: DABRAFENIB
     Indication: Malignant melanoma
     Dosage: 150 MG, BID (VERY INADEQUATE AND MISLEADING PACKAGE LEAFLET FOR USERS)
     Route: 048
     Dates: start: 202402
  4. DABRAFENIB [Suspect]
     Active Substance: DABRAFENIB
     Dosage: 75 MG, BID (VERY INADEQUATE AND MISLEADING PACKAGE LEAFLET FOR USERS)
     Route: 048
     Dates: end: 202403
  5. PEMBROLIZUMAB [Suspect]
     Active Substance: PEMBROLIZUMAB
     Dosage: 200 MG (SECOND LINE) (EVERY 21 DAYS)
     Route: 042
  6. TRAMETINIB [Suspect]
     Active Substance: TRAMETINIB
     Indication: Malignant melanoma
     Dosage: 2 MG, QD (VERY INADEQUATE AND MISLEADING PACKAGE LEAFLET FOR USERS)
     Route: 048
     Dates: start: 202402, end: 202403

REACTIONS (8)
  - Electrocardiogram QT prolonged [Recovered/Resolved]
  - Hypertension [Recovered/Resolved]
  - Visual impairment [Recovering/Resolving]
  - Pyrexia [Recovered/Resolved]
  - Neoplasm progression [Not Recovered/Not Resolved]
  - Skin toxicity [Unknown]
  - Nausea [Recovered/Resolved]
  - Vomiting [Recovered/Resolved]

NARRATIVE: CASE EVENT DATE: 20240130
